FAERS Safety Report 14738954 (Version 2)
Quarter: 2018Q2

REPORT INFORMATION
  Report Type: Report from Study
  Country: None (occurrence: DE)
  Receive Date: 20180410
  Receipt Date: 20180419
  Transmission Date: 20180711
  Serious: Yes (Hospitalization, Other)
  Sender: FDA-Public Use
  Company Number: DE-ABBVIE-18K-062-2316073-00

PATIENT
  Age: 60 Year
  Sex: Female
  Weight: 80 kg

DRUGS (7)
  1. RAMICLAIR [Concomitant]
     Indication: PRODUCT USED FOR UNKNOWN INDICATION
  2. JARDIANCE [Concomitant]
     Active Substance: EMPAGLIFLOZIN
     Indication: PRODUCT USED FOR UNKNOWN INDICATION
  3. HUMIRA [Suspect]
     Active Substance: ADALIMUMAB
     Dosage: WEEK 4
     Route: 058
     Dates: start: 201804
  4. HUMIRA [Suspect]
     Active Substance: ADALIMUMAB
     Dosage: WEEK 2
     Route: 058
     Dates: start: 201803, end: 201803
  5. JANUVIA [Concomitant]
     Active Substance: SITAGLIPTIN PHOSPHATE
     Indication: PRODUCT USED FOR UNKNOWN INDICATION
  6. HUMIRA [Suspect]
     Active Substance: ADALIMUMAB
     Indication: HIDRADENITIS
     Dosage: WEEK 0
     Route: 058
     Dates: start: 20180314, end: 20180314
  7. ACETYLSALICYLIC ACID [Concomitant]
     Active Substance: ASPIRIN
     Indication: PRODUCT USED FOR UNKNOWN INDICATION

REACTIONS (19)
  - Dizziness [Not Recovered/Not Resolved]
  - Vascular encephalopathy [Not Recovered/Not Resolved]
  - Intervertebral disc protrusion [Unknown]
  - Irritability [Unknown]
  - Blood pressure increased [Unknown]
  - Spinal column stenosis [Not Recovered/Not Resolved]
  - Glucose tolerance impaired [Unknown]
  - Sinus tachycardia [Unknown]
  - Gait disturbance [Recovering/Resolving]
  - Blood brain barrier defect [Unknown]
  - Hyperreflexia [Unknown]
  - Arteriosclerosis coronary artery [Unknown]
  - Gait disturbance [Recovered/Resolved]
  - Spondylitis [Unknown]
  - Ataxia [Unknown]
  - Aortic arteriosclerosis [Unknown]
  - Hypertension [Unknown]
  - Spinal osteoarthritis [Unknown]
  - White matter lesion [Unknown]

NARRATIVE: CASE EVENT DATE: 201803
